FAERS Safety Report 24588198 (Version 1)
Quarter: 2024Q4

REPORT INFORMATION
  Report Type: Spontaneous
  Country: US (occurrence: None)
  Receive Date: 20241106
  Receipt Date: 20241106
  Transmission Date: 20250114
  Serious: No
  Sender: Public
  Company Number: None

PATIENT
  Age: 43 Year
  Sex: Male

DRUGS (1)
  1. MEKINIST [Suspect]
     Active Substance: TRAMETINIB DIMETHYL SULFOXIDE
     Indication: Arteriovenous malformation
     Dosage: 1.5 MG DAILY ORAL
     Route: 048
     Dates: start: 20220324, end: 20241015

REACTIONS (2)
  - Petechiae [None]
  - Therapy cessation [None]

NARRATIVE: CASE EVENT DATE: 20241106
